FAERS Safety Report 19103885 (Version 5)
Quarter: 2022Q1

REPORT INFORMATION
  Report Type: Report from Study
  Country: JP (occurrence: JP)
  Receive Date: 20210407
  Receipt Date: 20220323
  Transmission Date: 20220424
  Serious: Yes (Hospitalization)
  Sender: FDA-Public Use
  Company Number: JP-MERCK HEALTHCARE KGAA-9223956

PATIENT
  Age: 62 Year
  Sex: Male
  Weight: 61 kg

DRUGS (32)
  1. TEPMETKO [Suspect]
     Active Substance: TEPOTINIB HYDROCHLORIDE
     Indication: Lung adenocarcinoma
     Route: 048
     Dates: start: 20201020
  2. TEPMETKO [Suspect]
     Active Substance: TEPOTINIB HYDROCHLORIDE
     Route: 048
     Dates: start: 202102
  3. METHYLPREDNISOLONE [Concomitant]
     Active Substance: METHYLPREDNISOLONE
     Indication: Interstitial lung disease
     Dates: start: 20210218, end: 20210218
  4. METHYLPREDNISOLONE [Concomitant]
     Active Substance: METHYLPREDNISOLONE
     Dates: start: 20210219, end: 20210301
  5. METHYLPREDNISOLONE [Concomitant]
     Active Substance: METHYLPREDNISOLONE
     Dates: start: 20210302, end: 20210312
  6. DECADRON [Concomitant]
     Active Substance: DEXAMETHASONE
     Indication: Product used for unknown indication
     Dosage: FOR 7 DAYS
     Route: 048
     Dates: start: 20201021
  7. LECICARBON [POTASSIUM TARTRATE;SODIUM BICARBONATE] [Concomitant]
     Indication: Constipation
     Dates: start: 20201022
  8. CARBAZOCHROME SODIUM SULFONATE [Concomitant]
     Active Substance: CARBAZOCHROME SODIUM SULFONATE
     Indication: Haemoptysis
     Dosage: 3 TABLETS FOR 8 DAYS
     Dates: start: 20201027
  9. TRANEXAMIC ACID [Concomitant]
     Active Substance: TRANEXAMIC ACID
     Indication: Haemoptysis
     Dosage: 3 X N FOR 8 DAYS
  10. MAGNESIUM OXIDE [Concomitant]
     Active Substance: MAGNESIUM OXIDE
     Indication: Product used for unknown indication
     Dosage: 4 TABLETS 2 X MA
     Dates: start: 20201214
  11. METGLUCO [Concomitant]
     Active Substance: METFORMIN HYDROCHLORIDE
     Indication: Glycosylated haemoglobin increased
     Dosage: 2 X MA
     Dates: start: 20210104
  12. CALONAL [Concomitant]
     Active Substance: ACETAMINOPHEN
     Indication: Pyrexia
     Dosage: 2 TABLETS
     Dates: start: 20210215
  13. NEXIUM [Concomitant]
     Active Substance: ESOMEPRAZOLE MAGNESIUM
     Indication: Prophylaxis against gastrointestinal ulcer
     Dosage: 1XM
     Dates: start: 20210220
  14. PREDONINE [Concomitant]
     Active Substance: PREDNISOLONE
     Indication: Product used for unknown indication
     Dosage: 4 TABLETS 1XM
     Dates: start: 20210302, end: 20210315
  15. PREDONINE [Concomitant]
     Active Substance: PREDNISOLONE
     Dosage: 3 TABLETS 1XM
     Dates: start: 20210316
  16. CEFCAPENE PIVOXIL HYDROCHLORIDE [Concomitant]
     Active Substance: CEFCAPENE PIVOXIL HYDROCHLORIDE
     Indication: Prophylaxis
     Dosage: 3 TABLETS 3XN ONLY  FOR 3 DAYS
     Dates: start: 20210311
  17. CEFCAPENE PIVOXIL HYDROCHLORIDE [Concomitant]
     Active Substance: CEFCAPENE PIVOXIL HYDROCHLORIDE
     Indication: Prophylaxis
     Dosage: 3 TABLETS 3XN
     Dates: start: 20210323
  18. SULFAMETHOXAZOLE\TRIMETHOPRIM [Concomitant]
     Active Substance: SULFAMETHOXAZOLE\TRIMETHOPRIM
     Indication: Prophylaxis
     Dosage: 0.5 TABLETS 1XM
     Dates: start: 20210312, end: 20210325
  19. SOLU-MEDROL [Concomitant]
     Active Substance: METHYLPREDNISOLONE SODIUM SUCCINATE
     Indication: Product used for unknown indication
     Route: 042
     Dates: start: 20210218
  20. SOLU-MEDROL [Concomitant]
     Active Substance: METHYLPREDNISOLONE SODIUM SUCCINATE
     Route: 042
     Dates: start: 20210219, end: 20210301
  21. AMPICILLIN SODIUM\SULBACTAM SODIUM [Concomitant]
     Active Substance: AMPICILLIN SODIUM\SULBACTAM SODIUM
     Indication: Pneumonia bacterial
     Route: 042
     Dates: start: 20210218, end: 20210226
  22. STRONGER NEO-MINOPHAGEN C [CYSTEINE HYDROCHLORIDE;GLYCINE;GLYCYRRHIZIC [Concomitant]
     Indication: Hepatic function abnormal
     Dosage: 5 VIALS
     Route: 042
     Dates: start: 20210226, end: 20210302
  23. AMLODIPINE [Concomitant]
     Active Substance: AMLODIPINE BESYLATE
     Indication: Product used for unknown indication
     Dosage: 1T 1XM.
  24. AMBROXOL HYDROCHLORIDE [Concomitant]
     Active Substance: AMBROXOL HYDROCHLORIDE
     Indication: Product used for unknown indication
     Dosage: 3T 3XN
  25. ASVERIN (TIPEPIDINE HIBENZATE) [Concomitant]
     Active Substance: TIPEPIDINE HIBENZATE
     Indication: Product used for unknown indication
     Dosage: 10 PERCENT POWDER 3XN
  26. LANSOPRAZOLE [Concomitant]
     Active Substance: LANSOPRAZOLE
     Indication: Product used for unknown indication
     Dosage: 1T 1XM.
  27. HYPEN [INDAPAMIDE] [Concomitant]
     Indication: Product used for unknown indication
     Dosage: AT 2T 2XMA
  28. LOCOID [Concomitant]
     Active Substance: HYDROCORTISONE BUTYRATE
     Indication: Skin swelling
     Dosage: 0.1 PERCENT
  29. PURSENNID [SENNA ALEXANDRINA LEAF] [Concomitant]
     Indication: Constipation
     Dosage: AT 2T
  30. DEXAMETHASONE SODIUM PHOSPHATE [Concomitant]
     Active Substance: DEXAMETHASONE SODIUM PHOSPHATE
     Indication: Product used for unknown indication
     Route: 041
  31. SODIUM CHLORIDE [Concomitant]
     Active Substance: SODIUM CHLORIDE
     Indication: Brain oedema
     Route: 041
  32. GLYCERIN [Concomitant]
     Active Substance: GLYCERIN
     Indication: Product used for unknown indication
     Dosage: CONTAINING FRUCTOSE DRIP INFUSION
     Route: 041

REACTIONS (5)
  - Granulomatosis with polyangiitis [Recovered/Resolved]
  - Renal impairment [Recovered/Resolved]
  - Pyrexia [Recovered/Resolved]
  - Aspartate aminotransferase increased [Recovered/Resolved]
  - Alanine aminotransferase increased [Recovered/Resolved]

NARRATIVE: CASE EVENT DATE: 20201102
